FAERS Safety Report 10493658 (Version 1)
Quarter: 2014Q4

REPORT INFORMATION
  Report Type: Spontaneous
  Country: US (occurrence: US)
  Receive Date: 20141002
  Receipt Date: 20141002
  Transmission Date: 20150528
  Serious: No
  Sender: FDA-Public Use
  Company Number: US-GLAXOSMITHKLINE-A1086713A

PATIENT
  Age: 80 Year
  Sex: Female

DRUGS (17)
  1. LEVOTHYROXINE [Concomitant]
     Active Substance: LEVOTHYROXINE
  2. DOXYCYCLINE. [Concomitant]
     Active Substance: DOXYCYCLINE
  3. NYSTATIN. [Concomitant]
     Active Substance: NYSTATIN
  4. BENICAR [Concomitant]
     Active Substance: OLMESARTAN MEDOXOMIL
  5. PRILOSEC [Concomitant]
     Active Substance: OMEPRAZOLE MAGNESIUM
  6. PREDNISONE. [Concomitant]
     Active Substance: PREDNISONE
     Dosage: 10MG IN THE MORNING
  7. NAPROXEN. [Concomitant]
     Active Substance: NAPROXEN
  8. MVI [Concomitant]
     Active Substance: VITAMINS
  9. MUCINEX [Concomitant]
     Active Substance: GUAIFENESIN
  10. CHOLESTEROL REDUCING AGENT [Concomitant]
  11. COREG [Concomitant]
     Active Substance: CARVEDILOL
  12. DILTIAZEM [Concomitant]
     Active Substance: DILTIAZEM
  13. KCL [Concomitant]
     Active Substance: POTASSIUM CHLORIDE
  14. FISH OIL [Concomitant]
     Active Substance: FISH OIL
  15. ADVAIR HFA [Suspect]
     Active Substance: FLUTICASONE PROPIONATE\SALMETEROL XINAFOATE
     Indication: CHRONIC OBSTRUCTIVE PULMONARY DISEASE
     Dosage: 1PUFF TWICE PER DAY
     Route: 055
     Dates: start: 2007
  16. SPIRIVA [Concomitant]
     Active Substance: TIOTROPIUM BROMIDE MONOHYDRATE
  17. OMEPRAZOLE. [Concomitant]
     Active Substance: OMEPRAZOLE

REACTIONS (4)
  - Headache [Unknown]
  - Cataract [Not Recovered/Not Resolved]
  - Eye disorder [Unknown]
  - Vision blurred [Unknown]

NARRATIVE: CASE EVENT DATE: 2011
